FAERS Safety Report 24871942 (Version 2)
Quarter: 2025Q1

REPORT INFORMATION
  Report Type: Spontaneous
  Country: US (occurrence: US)
  Receive Date: 20250122
  Receipt Date: 20250321
  Transmission Date: 20250409
  Serious: No
  Sender: ROCHE
  Company Number: US-ROCHE-10000184864

PATIENT
  Age: 37 Year
  Sex: Female
  Weight: 57.61 kg

DRUGS (1)
  1. XOLAIR [Suspect]
     Active Substance: OMALIZUMAB
     Indication: Chronic spontaneous urticaria
     Dosage: STRENGTH: 300MG/2ML
     Route: 058
     Dates: start: 20241217

REACTIONS (2)
  - Drug ineffective [Unknown]
  - No adverse event [Unknown]
